FAERS Safety Report 21932940 (Version 1)
Quarter: 2023Q1

REPORT INFORMATION
  Report Type: Spontaneous
  Country: AU (occurrence: AU)
  Receive Date: 20230131
  Receipt Date: 20230131
  Transmission Date: 20230417
  Serious: Yes (Other)
  Sender: FDA-Public Use
  Company Number: AU-BoehringerIngelheim-2023-BI-215633

PATIENT
  Age: 78 Year
  Sex: Female

DRUGS (2)
  1. OFEV [Suspect]
     Active Substance: NINTEDANIB
     Indication: Product used for unknown indication
  2. PEMETREXED [Suspect]
     Active Substance: PEMETREXED
     Indication: Product used for unknown indication

REACTIONS (6)
  - Myelosuppression [Unknown]
  - Diarrhoea [Unknown]
  - Disease progression [Unknown]
  - Dyspnoea exertional [Unknown]
  - Renal disorder [Unknown]
  - Therapeutic product effect incomplete [Unknown]
